FAERS Safety Report 5519309-3 (Version None)
Quarter: 2007Q4

REPORT INFORMATION
  Report Type: 
  Country: None (occurrence: None)
  Receive Date: 20071114
  Receipt Date: 20071029
  Transmission Date: 20080405
  Serious: Yes (Disabling)
  Sender: FDA-Public Use
  Company Number: 163422ISR

PATIENT
  Age: 67 Year
  Sex: Female

DRUGS (1)
  1. BISOPROLOL FUMARATE [Suspect]
     Indication: HYPERTENSION
     Dosage: (2.5 MG) ORAL
     Route: 048
     Dates: start: 20070404, end: 20070503

REACTIONS (1)
  - DEAFNESS UNILATERAL [None]
